FAERS Safety Report 8009598-8 (Version None)
Quarter: 2011Q4

REPORT INFORMATION
  Report Type: 
  Country: None (occurrence: None)
  Receive Date: 20111228
  Receipt Date: 20111219
  Transmission Date: 20120403
  Serious: Yes (Death)
  Sender: FDA-Public Use
  Company Number: US-BIOGENIDEC-2011BI031496

PATIENT
  Age: 61 Year
  Sex: Female
  Weight: 62 kg

DRUGS (11)
  1. ACETAMINOPHEN [Concomitant]
     Indication: PAIN
     Route: 048
  2. AMITRIPTYLINE [Concomitant]
     Indication: SLEEP DISORDER
     Route: 048
     Dates: start: 20110101
  3. VITAMIN D [Concomitant]
     Indication: VITAMIN D DEFICIENCY
     Dates: start: 20090908
  4. HYDROCODONE [Concomitant]
     Indication: PAIN
     Route: 048
  5. MORPHINE SULFATE [Concomitant]
     Indication: PAIN
     Route: 048
     Dates: start: 20081014
  6. ALPRAZOLAM [Concomitant]
     Indication: ANXIETY
     Route: 048
     Dates: start: 20060516
  7. ALBUTEROL SULFATE [Concomitant]
  8. TYSABRI [Suspect]
     Indication: MULTIPLE SCLEROSIS
     Route: 042
     Dates: start: 20071002, end: 20110802
  9. LANSOPRAZOLE [Concomitant]
     Indication: PEPTIC ULCER
     Route: 048
     Dates: start: 20051122
  10. DIPHENHYDRAMINE HCL [Concomitant]
     Route: 048
     Dates: start: 20090908
  11. POTASSIUM CHLORIDE [Concomitant]
     Indication: HYPOCALCAEMIA
     Route: 048
     Dates: start: 20090908

REACTIONS (1)
  - SUDDEN DEATH [None]
